FAERS Safety Report 20510417 (Version 1)
Quarter: 2022Q1

REPORT INFORMATION
  Report Type: Other
  Country: CA (occurrence: CA)
  Receive Date: 20220224
  Receipt Date: 20220224
  Transmission Date: 20220424
  Serious: Yes (Other)
  Sender: FDA-Public Use
  Company Number: CA-APOTEX-2022AP003596

PATIENT
  Sex: Male

DRUGS (2)
  1. DICLOFENAC [Suspect]
     Active Substance: DICLOFENAC
     Indication: Product used for unknown indication
     Dosage: UNK UNK, QD
     Route: 048
  2. COSENTYX [Suspect]
     Active Substance: SECUKINUMAB
     Indication: Ankylosing spondylitis
     Dosage: 150 MILLIGRAM, Q.M.T.
     Route: 058

REACTIONS (7)
  - Cough [Unknown]
  - Gastrointestinal disorder [Unknown]
  - Lower respiratory tract infection [Unknown]
  - Nasal dryness [Unknown]
  - Rhinorrhoea [Unknown]
  - Sinusitis [Unknown]
  - Therapeutic product effect incomplete [Unknown]
